FAERS Safety Report 12233405 (Version 1)
Quarter: 2016Q2

REPORT INFORMATION
  Report Type: Other
  Country: UA (occurrence: UA)
  Receive Date: 20160404
  Receipt Date: 20160404
  Transmission Date: 20160815
  Serious: Yes (Hospitalization)
  Sender: FDA-Public Use
  Company Number: UA-CIPLA LTD.-2016UA03166

PATIENT

DRUGS (7)
  1. LEVOFLOXACIN. [Suspect]
     Active Substance: LEVOFLOXACIN
     Dosage: 500 MG, BID
     Route: 048
     Dates: start: 20110112
  2. LEVOFLOXACIN. [Suspect]
     Active Substance: LEVOFLOXACIN
     Dosage: 500 MG, BID
     Route: 042
     Dates: start: 20110804
  3. TENOFOVIR DISOPROXIL FUMARATE. [Suspect]
     Active Substance: TENOFOVIR DISOPROXIL FUMARATE
     Dosage: UNK, QD
     Route: 048
     Dates: start: 20110118
  4. ?SONIAZIDUM [Suspect]
     Active Substance: ISONIAZID
     Dosage: 0.3 G, QD
     Route: 048
     Dates: start: 20110112
  5. AETHAMBUTOLUM [Suspect]
     Active Substance: ETHAMBUTOL HYDROCHLORIDE
     Dosage: 1.2 G, QD
     Route: 048
     Dates: start: 20110112
  6. PAS [Suspect]
     Active Substance: AMINOSALICYLIC ACID
     Dosage: 2 ML, QD
     Route: 048
     Dates: start: 20110112
  7. BISEPTOL [Suspect]
     Active Substance: SULFAMETHOXAZOLE\TRIMETHOPRIM
     Dosage: 480 MG, QD
     Route: 048
     Dates: start: 20110112

REACTIONS (5)
  - Pyrexia [Recovered/Resolved with Sequelae]
  - Asthenia [Recovered/Resolved with Sequelae]
  - Abdominal discomfort [Recovered/Resolved with Sequelae]
  - Blood creatinine increased [Recovered/Resolved with Sequelae]
  - Blood urea increased [Recovered/Resolved with Sequelae]

NARRATIVE: CASE EVENT DATE: 20110805
